FAERS Safety Report 4713094-0 (Version None)
Quarter: 2005Q3

REPORT INFORMATION
  Report Type: 
  Country: None (occurrence: None)
  Receive Date: 20050712
  Receipt Date: 20050712
  Transmission Date: 20060218
  Serious: Yes (Hospitalization)
  Sender: FDA-Public Use
  Company Number: None

PATIENT
  Age: 62 Year
  Sex: Male
  Weight: 88.2 kg

DRUGS (10)
  1. GATIFLOXACIN [Suspect]
     Indication: PNEUMONIA
     Dosage: 400 MG , 400 MG DA, ORAL
     Route: 048
     Dates: start: 20041114, end: 20041122
  2. FUROSEMIDE [Concomitant]
  3. GATIFLOXACIN [Concomitant]
  4. COUMADIN [Concomitant]
  5. LISINOPRIL [Concomitant]
  6. ASPIRIN [Concomitant]
  7. ISOSORBIDE MONONITRATE [Concomitant]
  8. METOPROLOL TARTRATE [Concomitant]
  9. SIMVASTATIN [Concomitant]
  10. NITROGLYCERIN [Concomitant]

REACTIONS (1)
  - HYPERGLYCAEMIA [None]
